FAERS Safety Report 9517804 (Version 2)
Quarter: 2013Q3

REPORT INFORMATION
  Report Type: Spontaneous
  Country: NL (occurrence: NL)
  Receive Date: 20130912
  Receipt Date: 20130927
  Transmission Date: 20140515
  Serious: Yes (Death)
  Sender: FDA-Public Use
  Company Number: NL-AMGEN-NLDSP2013063943

PATIENT
  Age: 73 Year
  Sex: Male

DRUGS (5)
  1. XGEVA [Suspect]
     Indication: PROPHYLAXIS
     Dosage: UNK UNK, Q4WK
     Route: 065
     Dates: start: 20130620
  2. FENTANYL [Concomitant]
     Dosage: 12 MUG/HR
  3. CALCI CHEW D3 [Concomitant]
     Dosage: 500 MG/400 IE
  4. PANTOPRAZOL [Concomitant]
     Dosage: 40 MG, UNK
  5. FOLIC ACID [Concomitant]
     Dosage: 0.5 MG, UNK

REACTIONS (1)
  - Death [Fatal]
